FAERS Safety Report 4830140-4 (Version None)
Quarter: 2005Q4

REPORT INFORMATION
  Report Type: 
  Country: None (occurrence: None)
  Receive Date: 20051115
  Receipt Date: 20051115
  Transmission Date: 20060501
  Serious: Yes (Hospitalization)
  Sender: FDA-Public Use
  Company Number: None

PATIENT
  Age: 55 Year
  Sex: Female
  Weight: 49.6 kg

DRUGS (15)
  1. HEPARIN [Suspect]
     Dosage: 3 ML 100 UNITS/ML PRN
     Dates: start: 20050819, end: 20050821
  2. GENTAMICIN [Concomitant]
  3. FENTANYL [Concomitant]
  4. SOLU-CORTEF [Concomitant]
  5. INSULIN [Concomitant]
  6. IMIPENEM [Concomitant]
  7. LANSOPRAZOLE [Concomitant]
  8. MORPHINE [Concomitant]
  9. PROMETHAZINE [Concomitant]
  10. HEPARIN LOCK FLUSH [Concomitant]
  11. VALTREX [Concomitant]
  12. SEPTRA [Concomitant]
  13. FLUCONAZOLE [Concomitant]
  14. MAGNESIUM SULFATE [Concomitant]
  15. VANCOMYCIN [Concomitant]

REACTIONS (9)
  - ACUTE RESPIRATORY DISTRESS SYNDROME [None]
  - ANTIBODY TEST POSITIVE [None]
  - DEEP VEIN THROMBOSIS [None]
  - DISSEMINATED INTRAVASCULAR COAGULATION [None]
  - GASTRITIS [None]
  - GASTROINTESTINAL HAEMORRHAGE [None]
  - GENERAL PHYSICAL HEALTH DETERIORATION [None]
  - SEPSIS [None]
  - STRESS [None]
